FAERS Safety Report 7579779-6 (Version None)
Quarter: 2011Q2

REPORT INFORMATION
  Report Type: 
  Country: None (occurrence: None)
  Receive Date: 20110629
  Receipt Date: 20110621
  Transmission Date: 20111010
  Serious: Yes (Other)
  Sender: FDA-Public Use
  Company Number: CA-ABBOTT-11P-028-0734260-00

PATIENT
  Sex: Female
  Weight: 45.4 kg

DRUGS (6)
  1. HUMIRA [Suspect]
     Indication: CROHN'S DISEASE
     Route: 058
     Dates: start: 20080702
  2. HUMIRA [Suspect]
     Route: 058
  3. CELEBREX [Concomitant]
     Indication: PAIN
     Route: 048
  4. CARBAMAZEPINE [Concomitant]
     Indication: EPILEPSY
     Route: 048
  5. PREDNISONE [Concomitant]
     Indication: CROHN'S DISEASE
  6. LIPITOR [Concomitant]
     Indication: BLOOD CHOLESTEROL INCREASED

REACTIONS (10)
  - HERPES VIRUS INFECTION [None]
  - HYPOPHAGIA [None]
  - VICTIM OF SEXUAL ABUSE [None]
  - NEPHROLITHIASIS [None]
  - PRURITUS GENERALISED [None]
  - DEPRESSION [None]
  - ABDOMINAL PAIN UPPER [None]
  - URINARY TRACT INFECTION [None]
  - CROHN'S DISEASE [None]
  - DIARRHOEA [None]
